FAERS Safety Report 6126628-9 (Version None)
Quarter: 2009Q1

REPORT INFORMATION
  Report Type: 
  Country: None (occurrence: None)
  Receive Date: 20090320
  Receipt Date: 20090311
  Transmission Date: 20090719
  Serious: Yes (Hospitalization)
  Sender: FDA-Public Use
  Company Number: US-AVENTIS-200911986US

PATIENT
  Age: 77 Year
  Sex: Female

DRUGS (2)
  1. LANTUS [Suspect]
     Route: 058
  2. LANTUS [Suspect]
     Route: 058
     Dates: start: 20080101

REACTIONS (5)
  - BLOOD CREATININE INCREASED [None]
  - CHEST PAIN [None]
  - HYPERGLYCAEMIA [None]
  - OFF LABEL USE [None]
  - RENAL FAILURE [None]
